FAERS Safety Report 16683769 (Version 1)
Quarter: 2019Q3

REPORT INFORMATION
  Report Type: Report from Study
  Country: None (occurrence: US)
  Receive Date: 20190808
  Receipt Date: 20190808
  Transmission Date: 20191004
  Serious: Yes (Hospitalization, Other)
  Sender: FDA-Public Use
  Company Number: US-ABBVIE-19K-163-2882038-00

PATIENT
  Sex: Female

DRUGS (1)
  1. HUMIRA [Suspect]
     Active Substance: ADALIMUMAB
     Indication: CROHN^S DISEASE
     Dosage: CITRATE FREE
     Route: 058
     Dates: start: 20190308

REACTIONS (9)
  - Nausea [Recovered/Resolved]
  - Hospitalisation [Recovered/Resolved]
  - Intestinal stenosis [Recovered/Resolved]
  - Contusion [Unknown]
  - Weight fluctuation [Unknown]
  - Crohn^s disease [Recovered/Resolved]
  - Intestinal obstruction [Recovered/Resolved]
  - Injection site bruising [Unknown]
  - Impaired healing [Unknown]

NARRATIVE: CASE EVENT DATE: 2019
